FAERS Safety Report 23791529 (Version 1)
Quarter: 2024Q2

REPORT INFORMATION
  Report Type: Other
  Country: US (occurrence: US)
  Receive Date: 20240429
  Receipt Date: 20240429
  Transmission Date: 20240716
  Serious: Yes (Hospitalization, Other)
  Sender: FDA-Public Use
  Company Number: US-DENTSPLY-2024SCDP000119

PATIENT
  Age: 38 Year
  Sex: Female

DRUGS (7)
  1. LIDOCAINE [Suspect]
     Active Substance: LIDOCAINE
     Indication: Local anaesthesia
     Dosage: 15 MILLILITER PER 2 HOURS LIDOCAINE 0.5% INFUSION (PFT) (AUTO BOLUS 15 ML EVERY 2 HOURS, AND DEMAND
  2. LIDOCAINE [Suspect]
     Active Substance: LIDOCAINE
     Dosage: 10 MILLILITER PER 30 MINUTES LIDOCAINE 0.5% INFUSION (PFT) (ONLY ONE DEMAND BOLUS DELIVERED ON POD 3
  3. EPINEPHRINE [Concomitant]
     Active Substance: EPINEPHRINE
     Indication: Product used for unknown indication
     Dosage: 0.08 MCG/KG/MINUTE
  4. EPINEPHRINE [Concomitant]
     Active Substance: EPINEPHRINE
     Dosage: 0.01 MCG/KG/MINUTE (REDUCED TO 0.01 MCG/KG/MIN ON POD 2)
  5. NITRIC OXIDE [Concomitant]
     Active Substance: NITRIC OXIDE
     Indication: Product used for unknown indication
     Dosage: UNK (ON POD 3 TAPERED)
  6. NITRIC OXIDE [Concomitant]
     Active Substance: NITRIC OXIDE
     Dosage: UNK (20 PPM OF INHALED NITRIC OXIDE (INO)
  7. NITRIC OXIDE [Concomitant]
     Active Substance: NITRIC OXIDE
     Dosage: UNK (ON POD 2 TAPERED)

REACTIONS (4)
  - Cardiovascular insufficiency [Recovered/Resolved]
  - Blood pressure systolic increased [Recovered/Resolved]
  - Drug level increased [Recovered/Resolved]
  - Local anaesthetic systemic toxicity [Recovered/Resolved]
